FAERS Safety Report 5140570-1 (Version None)
Quarter: 2006Q4

REPORT INFORMATION
  Report Type: 
  Country: None (occurrence: None)
  Receive Date: 20061023
  Receipt Date: 20061012
  Transmission Date: 20070319
  Serious: Yes (Other)
  Sender: FDA-Public Use
  Company Number: 200610302BBE

PATIENT
  Age: 57 Year
  Sex: Male
  Weight: 158.9858 kg

DRUGS (2)
  1. PROLASTIN [Suspect]
     Indication: ALPHA-1 ANTI-TRYPSIN DEFICIENCY
     Dosage: 9540 MG, TOTAL DAILY, INTRAVEN
     Route: 042
     Dates: start: 20061003
  2. PROLASTIN [Suspect]
     Indication: ALPHA-1 ANTI-TRYPSIN DEFICIENCY
     Dosage: 9540 MG, TOTAL DAILY, INTRAVEN
     Route: 042
     Dates: start: 20061010

REACTIONS (8)
  - BLOOD GLUCOSE INCREASED [None]
  - DIZZINESS [None]
  - FATIGUE [None]
  - FLUSHING [None]
  - OEDEMA PERIPHERAL [None]
  - POLLAKIURIA [None]
  - URINE KETONE BODY PRESENT [None]
  - VISION BLURRED [None]
